FAERS Safety Report 8129870-0 (Version None)
Quarter: 2012Q1

REPORT INFORMATION
  Report Type: 
  Country: None (occurrence: None)
  Receive Date: 20120210
  Receipt Date: 20120208
  Transmission Date: 20120608
  Serious: Yes (Death, Hospitalization)
  Sender: FDA-Public Use
  Company Number: US-B.I. PHARMACEUTICALS,INC./RIDGEFIELD-2011-BP-27655BP

PATIENT
  Age: 65 Year
  Sex: Male

DRUGS (9)
  1. ACTOS [Concomitant]
  2. TERAZOSIN HCL [Concomitant]
  3. PRADAXA [Suspect]
     Indication: ATRIAL FIBRILLATION
     Dosage: 300 MG
     Route: 048
  4. SIMVASTATIN [Concomitant]
  5. METFORMIN HCL [Concomitant]
  6. LISINOPRIL [Concomitant]
  7. METOCLOPRAMIDE [Concomitant]
  8. AMLODIPINE [Concomitant]
  9. ALLOPURINOL [Concomitant]

REACTIONS (1)
  - INTRACARDIAC THROMBUS [None]
